FAERS Safety Report 21542149 (Version 3)
Quarter: 2022Q4

REPORT INFORMATION
  Report Type: Spontaneous
  Country: US (occurrence: US)
  Receive Date: 20221102
  Receipt Date: 20221201
  Transmission Date: 20230112
  Serious: Yes (Hospitalization, Other)
  Sender: FDA-Public Use
  Company Number: US-PFIZER INC-202201265867

PATIENT
  Age: 79 Year
  Sex: Male
  Weight: 74.84 kg

DRUGS (2)
  1. ZIRABEV [Suspect]
     Active Substance: BEVACIZUMAB-BVZR
     Indication: Glioblastoma
     Dosage: 800 MG, EVERY 3 WEEKS
     Route: 042
     Dates: start: 20221026
  2. ZIRABEV [Suspect]
     Active Substance: BEVACIZUMAB-BVZR
     Dosage: UNK [THEY GAVE 5 PER KILO, HE GOT 10 PER KILO]

REACTIONS (4)
  - Hip fracture [Unknown]
  - Fall [Unknown]
  - Off label use [Unknown]
  - Off label use [Unknown]

NARRATIVE: CASE EVENT DATE: 20221001
